FAERS Safety Report 25286718 (Version 1)
Quarter: 2025Q2

REPORT INFORMATION
  Report Type: Spontaneous
  Country: US (occurrence: US)
  Receive Date: 20250509
  Receipt Date: 20250509
  Transmission Date: 20250717
  Serious: Yes (Hospitalization)
  Sender: ACCORD
  Company Number: US-Accord-483005

PATIENT
  Age: 76 Year
  Sex: Female

DRUGS (2)
  1. ANASTROZOLE [Suspect]
     Active Substance: ANASTROZOLE
     Indication: Hormone receptor positive breast cancer
  2. ANASTROZOLE [Suspect]
     Active Substance: ANASTROZOLE
     Indication: Lobular breast carcinoma in situ

REACTIONS (1)
  - Drug-induced liver injury [Recovering/Resolving]
